FAERS Safety Report 17021956 (Version 1)
Quarter: 2019Q4

REPORT INFORMATION
  Report Type: Spontaneous
  Country: US (occurrence: US)
  Receive Date: 20191110
  Receipt Date: 20191110
  Transmission Date: 20200122
  Serious: No
  Sender: FDA-Public Use
  Company Number: None

PATIENT
  Sex: Female

DRUGS (1)
  1. DERMALINE 10% SULFUR OINTMENT ACNE TREATMENT [Suspect]
     Active Substance: SULFUR
     Dosage: ?          QUANTITY:2.5 OUNCE(S);?

REACTIONS (3)
  - Physical product label issue [None]
  - Product label counterfeit [None]
  - Product use complaint [None]

NARRATIVE: CASE EVENT DATE: 20190925
